FAERS Safety Report 7380290-6 (Version None)
Quarter: 2011Q1

REPORT INFORMATION
  Report Type: 
  Country: None (occurrence: None)
  Receive Date: 20110318
  Receipt Date: 20110309
  Transmission Date: 20110831
  Serious: No
  Sender: FDA-Public Use
  Company Number: 029038

PATIENT
  Sex: Female

DRUGS (2)
  1. KEPPRA [Suspect]
     Indication: EPILEPSY
     Dosage: 2000 MG, (1750 MG, 1000 MG MORNING AND 750 MG EVENING)
  2. VITAMIN B6 [Concomitant]

REACTIONS (17)
  - DECREASED APPETITE [None]
  - HYPERSOMNIA [None]
  - DEPRESSION [None]
  - NEUTROPHIL COUNT DECREASED [None]
  - MUSCULAR WEAKNESS [None]
  - APATHY [None]
  - PERSONALITY CHANGE [None]
  - WEIGHT DECREASED [None]
  - ANGER [None]
  - SOCIAL AVOIDANT BEHAVIOUR [None]
  - VITAMIN D DECREASED [None]
  - ATAXIA [None]
  - FATIGUE [None]
  - INSOMNIA [None]
  - PARANOIA [None]
  - MEMORY IMPAIRMENT [None]
  - UNEVALUABLE EVENT [None]
